FAERS Safety Report 8966877 (Version 1)
Quarter: 2012Q4

REPORT INFORMATION
  Report Type: Report from Study
  Country: IT (occurrence: IT)
  Receive Date: 20121214
  Receipt Date: 20121214
  Transmission Date: 20130627
  Serious: Yes (Hospitalization)
  Sender: FDA-Public Use
  Company Number: IT-BAXTER-2012BAX026505

PATIENT
  Age: 46 Year
  Sex: Female
  Weight: 72 kg

DRUGS (10)
  1. ENDOXAN BAXTER [Suspect]
     Indication: BREAST CANCER
     Route: 042
     Dates: start: 20080917, end: 20080917
  2. ENDOXAN BAXTER [Suspect]
     Route: 042
     Dates: end: 20081008
  3. TRASTUZUMAB [Suspect]
     Indication: BREAST CANCER
     Dosage: Loading dose
     Route: 042
     Dates: start: 20080917, end: 20080917
  4. TRASTUZUMAB [Suspect]
     Route: 042
     Dates: start: 20081008, end: 20081008
  5. PERTUZUMAB [Suspect]
     Indication: BREAST CANCER
     Route: 042
     Dates: start: 20080504, end: 20080718
  6. DOCETAXEL [Suspect]
     Indication: BREAST CANCER
     Route: 042
     Dates: start: 20080516, end: 20080718
  7. EPIRUBICIN [Suspect]
     Indication: DRUG USE FOR UNKNOWN INDICATION
     Route: 042
     Dates: start: 20080917, end: 20080917
  8. EPIRUBICIN [Suspect]
     Route: 042
     Dates: end: 20081008
  9. FLUOROURACIL [Suspect]
     Indication: BREAST CANCER
     Route: 042
     Dates: start: 20080917, end: 20080917
  10. FLUOROURACIL [Suspect]
     Route: 042
     Dates: end: 20081008

REACTIONS (2)
  - Febrile neutropenia [Recovered/Resolved]
  - Device related infection [Recovered/Resolved]
